FAERS Safety Report 9728813 (Version 1)
Quarter: 2013Q4

REPORT INFORMATION
  Report Type: Spontaneous
  Country: US (occurrence: US)
  Receive Date: 20131204
  Receipt Date: 20131204
  Transmission Date: 20140711
  Serious: No
  Sender: FDA-Public Use
  Company Number: US-BIOGENIDEC-2013BI095568

PATIENT
  Age: 30 Year
  Sex: Female

DRUGS (8)
  1. TECFIDERA [Suspect]
     Indication: PRODUCT USED FOR UNKNOWN INDICATION
     Route: 048
  2. TECFIDERA [Suspect]
     Indication: PRODUCT USED FOR UNKNOWN INDICATION
     Route: 048
  3. AMLOD/BENAZP [Concomitant]
     Route: 048
  4. HYDROCHLOROT [Concomitant]
     Route: 048
  5. LEVOTHYROXIN [Concomitant]
     Route: 048
  6. NORVASC [Concomitant]
     Route: 048
  7. PROZAC [Concomitant]
     Route: 048
  8. TYLENOL PM [Concomitant]
     Route: 048

REACTIONS (1)
  - Upper respiratory tract infection [Unknown]
